FAERS Safety Report 7659879-2 (Version None)
Quarter: 2011Q3

REPORT INFORMATION
  Report Type: 
  Country: None (occurrence: None)
  Receive Date: 20110805
  Receipt Date: 20110727
  Transmission Date: 20111222
  Serious: Yes (Hospitalization)
  Sender: FDA-Public Use
  Company Number: US-JNJFOC-20110800745

PATIENT
  Age: 21 Year
  Sex: Female
  Weight: 42 kg

DRUGS (2)
  1. ACETAMINOPHEN [Suspect]
     Indication: HEADACHE
     Dosage: 7500 MG TO 10000 MG IN 8 HOURS
     Route: 048
  2. ACETAMINOPHEN [Suspect]
     Route: 048

REACTIONS (3)
  - ACCIDENTAL OVERDOSE [None]
  - VOMITING [None]
  - HEPATIC ENZYME INCREASED [None]
